FAERS Safety Report 10034342 (Version 1)
Quarter: 2014Q1

REPORT INFORMATION
  Report Type: Spontaneous
  Country: US (occurrence: None)
  Receive Date: 20140321
  Receipt Date: 20140321
  Transmission Date: 20141002
  Serious: Yes (Other)
  Sender: FDA-Public Use
  Company Number: IPC201403-000125

PATIENT
  Age: 77 Year
  Sex: 0

DRUGS (1)
  1. HYDROCHLOROTHIAZIDE [Suspect]

REACTIONS (1)
  - Mycosis fungoides [None]
